FAERS Safety Report 6191206-2 (Version None)
Quarter: 2009Q2

REPORT INFORMATION
  Report Type: 
  Country: None (occurrence: None)
  Receive Date: 20090515
  Receipt Date: 20090413
  Transmission Date: 20091009
  Serious: No
  Sender: FDA-Public Use
  Company Number: US-BAYER-200918405NA

PATIENT
  Age: 14 Year
  Sex: Female
  Weight: 50 kg

DRUGS (1)
  1. CIPRO [Suspect]
     Indication: VAGINAL INFECTION
     Route: 048
     Dates: start: 20090412

REACTIONS (3)
  - ABDOMINAL PAIN UPPER [None]
  - HYPOAESTHESIA ORAL [None]
  - RESTLESSNESS [None]
